FAERS Safety Report 5971707-X (Version None)
Quarter: 2008Q4

REPORT INFORMATION
  Report Type: 
  Country: None (occurrence: None)
  Receive Date: 20081126
  Receipt Date: 20081126
  Transmission Date: 20090506
  Serious: Yes (Hospitalization)
  Sender: FDA-Public Use
  Company Number: None

PATIENT
  Sex: Female
  Weight: 72 kg

DRUGS (5)
  1. CYCLOPHOSPHAMIDE [Suspect]
     Dosage: 1760 MG
  2. CYTARABINE [Suspect]
     Dosage: 1056 MG
  3. MERCAPTOPURINE [Suspect]
     Dosage: 1400 MG
  4. PEG-L ASPARAGINASE (K-H) [Suspect]
  5. VINCRISTINE SULFATE [Suspect]
     Dosage: 2 MG

REACTIONS (2)
  - DEHYDRATION [None]
  - FATIGUE [None]
